FAERS Safety Report 21327859 (Version 1)
Quarter: 2022Q3

REPORT INFORMATION
  Report Type: Spontaneous
  Country: US (occurrence: None)
  Receive Date: 20220913
  Receipt Date: 20220913
  Transmission Date: 20221027
  Serious: Yes (Other)
  Sender: FDA-Public Use
  Company Number: US-Unichem Pharmaceuticals (USA) Inc-UCM202209-000918

PATIENT
  Age: 58 Year
  Sex: Male

DRUGS (3)
  1. BACLOFEN [Suspect]
     Active Substance: BACLOFEN
     Indication: Myoclonic epilepsy
  2. CLONIDINE HYDROCHLORIDE [Suspect]
     Active Substance: CLONIDINE HYDROCHLORIDE
     Indication: Myoclonic epilepsy
     Dosage: UNKNOWN
  3. GABAPENTIN [Suspect]
     Active Substance: GABAPENTIN
     Indication: Myoclonic epilepsy
     Dosage: UNKNOWN

REACTIONS (9)
  - Anaphylactic reaction [Unknown]
  - Oxygen saturation decreased [Unknown]
  - Confusional state [Unknown]
  - Heart rate decreased [Unknown]
  - Syncope [Unknown]
  - Hypotension [Unknown]
  - Dizziness [Unknown]
  - Somnolence [Unknown]
  - Product use in unapproved indication [Unknown]
